FAERS Safety Report 24579723 (Version 1)
Quarter: 2024Q4

REPORT INFORMATION
  Report Type: Spontaneous
  Country: TR (occurrence: TR)
  Receive Date: 20241105
  Receipt Date: 20241105
  Transmission Date: 20250114
  Serious: Yes (Hospitalization)
  Sender: MERCK
  Company Number: TR-009507513-2410TUR013550

PATIENT
  Age: 15 Year
  Sex: Female

DRUGS (5)
  1. POSACONAZOLE [Suspect]
     Active Substance: POSACONAZOLE
     Indication: Prophylaxis
     Dosage: 300 MILLIGRAMS/DAY
     Route: 048
  2. TRETINOIN [Suspect]
     Active Substance: TRETINOIN
     Indication: Acute promyelocytic leukaemia
     Dosage: CYCLES OF 25 MG/M2/DAY IN 2 DIVIDED DOSES FOR 15 DAYS WITH EACH 4-WEEK CYCLE OF CHEMOTHERAPY
  3. TRETINOIN [Suspect]
     Active Substance: TRETINOIN
     Dosage: 25 MG/M2/DAY MAINTENANCE FOR FOURTEEN DAYS EVERY THREE MONTHS, STARTING FROM THE THIRD MONTH
  4. THIOGUANINE [Concomitant]
     Active Substance: THIOGUANINE
     Indication: Acute promyelocytic leukaemia
     Dosage: 40 MG/ M2/DAY MAINTENANCE
     Route: 048
  5. CYTARABINE [Concomitant]
     Active Substance: CYTARABINE
     Indication: Acute promyelocytic leukaemia
     Dosage: MAINTENANCE, 40 MILLIGRAM/SQ. METER, EVERY 4 WEEKS FOR FOUR CONSECUTIVE DAYS FOR ONE YEAR
     Route: 058

REACTIONS (1)
  - Hypercalcaemia [Recovered/Resolved]
